FAERS Safety Report 6958517-1 (Version None)
Quarter: 2010Q3

REPORT INFORMATION
  Report Type: 
  Country: None (occurrence: None)
  Receive Date: 20100831
  Receipt Date: 20100820
  Transmission Date: 20110219
  Serious: Yes (Other)
  Sender: FDA-Public Use
  Company Number: GB-ROCHE-722604

PATIENT
  Age: 45 Year
  Weight: 114 kg

DRUGS (1)
  1. MIRCERA [Suspect]
     Indication: ANAEMIA
     Dosage: FREQUENCY: NOT PROVIDED. DRUG WITHDRAWN.
     Route: 042
     Dates: start: 20100813, end: 20100813

REACTIONS (1)
  - MALAISE [None]
